FAERS Safety Report 14070333 (Version 1)
Quarter: 2017Q4

REPORT INFORMATION
  Report Type: Spontaneous
  Country: US (occurrence: US)
  Receive Date: 20171011
  Receipt Date: 20171011
  Transmission Date: 20180321
  Serious: No
  Sender: FDA-Public Use
  Company Number: US-B.I. PHARMACEUTICALS,INC./RIDGEFIELD-2017-BI-054053

PATIENT
  Age: 75 Year
  Sex: Female

DRUGS (2)
  1. GILOTRIF [Suspect]
     Active Substance: AFATINIB
     Indication: NON-SMALL CELL LUNG CANCER
     Dosage: 1 TABLET PER DAY;  FORM STRENGTH: 40 MG; FORMULATION: TABLET? ADMINISTRATION CORRECT? YES ?ACTION(S)
     Route: 048
     Dates: start: 201601, end: 201709
  2. GILOTRIF [Suspect]
     Active Substance: AFATINIB
     Dosage: 1 TABLET PER DAY;  FORM STRENGTH: 30 MG; FORMULATION: TABLET? ADMINISTRATION CORRECT? YES ?ACTION(S)
     Route: 048
     Dates: start: 201709

REACTIONS (16)
  - Laceration [Unknown]
  - Impaired healing [Unknown]
  - Rash [Unknown]
  - Dysphonia [Unknown]
  - Hyperhidrosis [Unknown]
  - Nail bed bleeding [Unknown]
  - Alopecia [Not Recovered/Not Resolved]
  - Nail disorder [Unknown]
  - Decreased appetite [Unknown]
  - Contusion [Unknown]
  - Rhinorrhoea [Unknown]
  - Rash macular [Unknown]
  - Dry eye [Unknown]
  - Skin atrophy [Unknown]
  - Upper-airway cough syndrome [Unknown]
  - Diarrhoea [Unknown]

NARRATIVE: CASE EVENT DATE: 201601
